FAERS Safety Report 7246435-3 (Version None)
Quarter: 2011Q1

REPORT INFORMATION
  Report Type: 
  Country: None (occurrence: None)
  Receive Date: 20110126
  Receipt Date: 20110117
  Transmission Date: 20110831
  Serious: Yes (Life-Threatening, Hospitalization)
  Sender: FDA-Public Use
  Company Number: RU-GENENTECH-311001

PATIENT
  Age: 63 Year
  Sex: Male

DRUGS (1)
  1. MABTHERA [Suspect]
     Indication: B-CELL LYMPHOMA
     Dosage: 800 MG, UNK
     Route: 041
     Dates: start: 20101029, end: 20101207

REACTIONS (3)
  - CHILLS [None]
  - HAEMOLYTIC ANAEMIA [None]
  - BODY TEMPERATURE INCREASED [None]
